FAERS Safety Report 23535530 (Version 1)
Quarter: 2024Q1

REPORT INFORMATION
  Report Type: Spontaneous
  Country: ES (occurrence: None)
  Receive Date: 20240218
  Receipt Date: 20240218
  Transmission Date: 20240410
  Serious: Yes (Other)
  Sender: FDA-Public Use
  Company Number: 2024A038435

PATIENT
  Age: 4 Month
  Weight: 6.5 kg

DRUGS (1)
  1. BEYFORTUS [Suspect]
     Active Substance: NIRSEVIMAB-ALIP
     Indication: Respiratory syncytial virus immunisation
     Dosage: UNK, TOTAL ONCE/SINGLE ADMINISTRATION
     Dates: start: 20231107, end: 20231107

REACTIONS (3)
  - Nasopharyngitis [Recovering/Resolving]
  - Respiratory syncytial virus bronchiolitis [Recovering/Resolving]
  - Drug ineffective [Unknown]

NARRATIVE: CASE EVENT DATE: 20231224
